FAERS Safety Report 5521998-4 (Version None)
Quarter: 2007Q4

REPORT INFORMATION
  Report Type: 
  Country: None (occurrence: None)
  Receive Date: 20071120
  Receipt Date: 20070924
  Transmission Date: 20080405
  Serious: Yes (Other)
  Sender: FDA-Public Use
  Company Number: US-BRISTOL-MYERS SQUIBB COMPANY-13917810

PATIENT

DRUGS (4)
  1. AVAPRO [Suspect]
     Indication: BLOOD PRESSURE INCREASED
  2. AVAPRO [Suspect]
     Indication: BLOOD CREATININE INCREASED
  3. AVALIDE [Suspect]
     Indication: BLOOD PRESSURE INCREASED
  4. AVALIDE [Suspect]
     Indication: BLOOD CREATININE INCREASED

REACTIONS (1)
  - BLOOD CREATININE ABNORMAL [None]
